FAERS Safety Report 7313929-1 (Version None)
Quarter: 2011Q1

REPORT INFORMATION
  Report Type: 
  Country: None (occurrence: None)
  Receive Date: 20110225
  Receipt Date: 20110223
  Transmission Date: 20110831
  Serious: Yes (Other)
  Sender: FDA-Public Use
  Company Number: JP-ROXANE LABORATORIES, INC.-2011-RO-00219RO

PATIENT
  Age: 73 Year
  Sex: Female
  Weight: 52 kg

DRUGS (8)
  1. FLURBIPROFEN [Suspect]
     Indication: INDUCTION OF ANAESTHESIA
  2. PROPOFOL [Suspect]
     Indication: INDUCTION OF ANAESTHESIA
  3. LIDOCAINE [Suspect]
     Indication: LOCAL ANAESTHESIA
  4. MIDAZOLAM HCL [Suspect]
     Indication: INDUCTION OF ANAESTHESIA
  5. LIDOCAINE [Suspect]
     Indication: NERVE BLOCK
  6. FENTANYL [Suspect]
     Indication: INDUCTION OF ANAESTHESIA
  7. AMLODIPINE [Suspect]
     Indication: HYPERTENSION
  8. ROPIVACAINE HYDROCHLORIDE [Suspect]
     Indication: NERVE BLOCK

REACTIONS (1)
  - TONIC CONVULSION [None]
